FAERS Safety Report 6355005-0 (Version None)
Quarter: 2009Q3

REPORT INFORMATION
  Report Type: 
  Country: None (occurrence: None)
  Receive Date: 20090914
  Receipt Date: 20090910
  Transmission Date: 20100115
  Serious: Yes (Death, Other)
  Sender: FDA-Public Use
  Company Number: A0806896A

PATIENT
  Age: 85 Year
  Sex: Female

DRUGS (3)
  1. PROMACTA [Suspect]
     Route: 048
  2. PREDNISONE [Concomitant]
     Indication: IDIOPATHIC THROMBOCYTOPENIC PURPURA
  3. CYCLOPHOSPHAMIDE [Concomitant]
     Indication: IDIOPATHIC THROMBOCYTOPENIC PURPURA

REACTIONS (3)
  - DRUG INEFFECTIVE [None]
  - NON-HODGKIN'S LYMPHOMA [None]
  - SEPSIS [None]
